FAERS Safety Report 22175045 (Version 2)
Quarter: 2023Q2

REPORT INFORMATION
  Report Type: Spontaneous
  Country: US (occurrence: US)
  Receive Date: 20230405
  Receipt Date: 20230419
  Transmission Date: 20230722
  Serious: Yes (Other)
  Sender: FDA-Public Use
  Company Number: US-GSK-US2023049040

PATIENT
  Age: 44 Year
  Sex: Female
  Weight: 84.82 kg

DRUGS (1)
  1. BREO ELLIPTA [Suspect]
     Active Substance: FLUTICASONE FUROATE\VILANTEROL TRIFENATATE
     Indication: Chronic obstructive pulmonary disease
     Dosage: UNK, 200/25 30 INHAL
     Dates: start: 201701

REACTIONS (4)
  - Pneumonia [Not Recovered/Not Resolved]
  - Dyspnoea [Recovering/Resolving]
  - Influenza [Not Recovered/Not Resolved]
  - Product dose omission issue [Unknown]

NARRATIVE: CASE EVENT DATE: 20230301
